FAERS Safety Report 9232674 (Version 1)
Quarter: 2013Q2

REPORT INFORMATION
  Report Type: Spontaneous
  Country: US (occurrence: US)
  Receive Date: 20130416
  Receipt Date: 20130416
  Transmission Date: 20140414
  Serious: No
  Sender: FDA-Public Use
  Company Number: US-009507513-1304USA005004

PATIENT
  Age: 30 Year
  Sex: Male

DRUGS (1)
  1. SAPHRIS [Suspect]
     Dosage: 10 MG, UNK
     Dates: start: 201303, end: 2013

REACTIONS (2)
  - Hypertension [Recovered/Resolved]
  - Blood glucose increased [Recovered/Resolved]
